FAERS Safety Report 7052802-3 (Version None)
Quarter: 2010Q4

REPORT INFORMATION
  Report Type: 
  Country: None (occurrence: None)
  Receive Date: 20101013
  Receipt Date: 20101005
  Transmission Date: 20110411
  Serious: Yes (Hospitalization)
  Sender: FDA-Public Use
  Company Number: 2009-193935-NL

PATIENT
  Age: 38 Year
  Sex: Female
  Weight: 58 kg

DRUGS (14)
  1. FOLLISTIM [Suspect]
     Indication: ASSISTED FERTILISATION
     Dosage: 225 IU; QD; IM
     Route: 030
     Dates: start: 20060828, end: 20060831
  2. HUMEGON [Suspect]
     Indication: ASSISTED FERTILISATION
     Dosage: 225 IU; QD
     Dates: start: 20060901, end: 20060903
  3. HCG FUJI (HUMAN CHORIONIC GONADOTROPHIN) [Concomitant]
  4. PREDNISOLONE [Concomitant]
  5. MARZULENE-S [Concomitant]
  6. MINOCYCLINE HCL [Concomitant]
  7. ENTERONON-R [Concomitant]
  8. LUTORAL [Concomitant]
  9. DACTIL [Concomitant]
  10. PROFASI HP [Concomitant]
  11. PREMARIN [Concomitant]
  12. PROGESTON [Concomitant]
  13. HCG MOCHIDA [Concomitant]
  14. LORCAM [Concomitant]

REACTIONS (6)
  - FORCEPS DELIVERY [None]
  - HAEMATOCRIT ABNORMAL [None]
  - HAEMOGLOBIN ABNORMAL [None]
  - PERINEAL LACERATION [None]
  - UTERINE HAEMORRHAGE [None]
  - WHITE BLOOD CELL COUNT ABNORMAL [None]
